FAERS Safety Report 17995379 (Version 1)
Quarter: 2020Q3

REPORT INFORMATION
  Report Type: Spontaneous
  Country: US (occurrence: US)
  Receive Date: 20200708
  Receipt Date: 20200708
  Transmission Date: 20201103
  Serious: Yes (Life-Threatening)
  Sender: FDA-Public Use
  Company Number: None

PATIENT
  Age: 63 Year
  Sex: Female
  Weight: 79.65 kg

DRUGS (8)
  1. TEGRETOL 200MG [Concomitant]
  2. LYRICA [Concomitant]
     Active Substance: PREGABALIN
  3. AUSTEDO [Suspect]
     Active Substance: DEUTETRABENAZINE
     Indication: TARDIVE DYSKINESIA
     Dosage: ?          OTHER FREQUENCY:QAM;?
     Route: 048
  4. QUETIAPINE 300MG [Concomitant]
     Active Substance: QUETIAPINE
  5. CYCLOBENZAPRINE 10MG [Concomitant]
     Active Substance: CYCLOBENZAPRINE
  6. PROMETHAZINE 25MG [Concomitant]
  7. FENTANYL 100MCG/HR PATCH [Concomitant]
  8. AUSTEDO [Suspect]
     Active Substance: DEUTETRABENAZINE
     Indication: TARDIVE DYSKINESIA
     Route: 048

REACTIONS (4)
  - Cyanosis [None]
  - Withdrawal syndrome [None]
  - Swollen tongue [None]
  - Loss of consciousness [None]

NARRATIVE: CASE EVENT DATE: 20200702
